FAERS Safety Report 5761928-3 (Version None)
Quarter: 2008Q2

REPORT INFORMATION
  Report Type: 
  Country: None (occurrence: None)
  Receive Date: 20080603
  Receipt Date: 20080523
  Transmission Date: 20081010
  Serious: Yes (Hospitalization, Other)
  Sender: FDA-Public Use
  Company Number: 2008-00014

PATIENT
  Age: 59 Year
  Sex: Male
  Weight: 97.5 kg

DRUGS (9)
  1. VELCADE [Suspect]
     Indication: SQUAMOUS CELL CARCINOMA
     Dosage: 1.30 MG/M2, UNK, IV BOLUS
     Route: 040
     Dates: start: 20060724, end: 20060803
  2. IRINOTECAN HCL [Suspect]
     Indication: SQUAMOUS CELL CARCINOMA
     Dosage: 125.00 MG/M2, UNK, INTRAVENOUS
     Route: 042
     Dates: start: 20060724, end: 20060803
  3. ATIVAN [Concomitant]
  4. METOPROLOL TARTRATE [Concomitant]
  5. MORPHINE [Concomitant]
  6. MULTIVITAMIN [Concomitant]
  7. SIMETHICONE (SIMETICONE) [Concomitant]
  8. IMODIUM [Concomitant]
  9. MOUTHWASH [Concomitant]

REACTIONS (12)
  - ABDOMINAL PAIN UPPER [None]
  - ASTHENIA [None]
  - DEHYDRATION [None]
  - DIZZINESS [None]
  - HAEMOGLOBIN DECREASED [None]
  - HYPOPHOSPHATAEMIA [None]
  - ILEUS [None]
  - INFREQUENT BOWEL MOVEMENTS [None]
  - NAUSEA [None]
  - RENAL IMPAIRMENT [None]
  - VOMITING [None]
  - WHITE BLOOD CELL COUNT DECREASED [None]
